FAERS Safety Report 8543211-6 (Version None)
Quarter: 2012Q3

REPORT INFORMATION
  Report Type: 
  Country: None (occurrence: None)
  Receive Date: 20120727
  Receipt Date: 20120717
  Transmission Date: 20120928
  Serious: Yes (Disabling)
  Sender: FDA-Public Use
  Company Number: US-JNJFOC-20120408630

PATIENT
  Sex: Male
  Weight: 86.64 kg

DRUGS (2)
  1. CLOBETASOL PROPIONATE [Concomitant]
     Indication: PSORIASIS
     Dosage: DAILY TO SKIN FOR 2 WEKS, STOP FOR 1 WEEK, REPEAT CYCLE
     Route: 065
     Dates: start: 20111101
  2. STELARA [Suspect]
     Indication: PSORIASIS
     Route: 058
     Dates: start: 20111201

REACTIONS (2)
  - THERAPEUTIC RESPONSE DECREASED [None]
  - DIVERTICULITIS [None]
